FAERS Safety Report 7648923-4 (Version None)
Quarter: 2011Q3

REPORT INFORMATION
  Report Type: 
  Country: None (occurrence: None)
  Receive Date: 20110801
  Receipt Date: 20110725
  Transmission Date: 20111222
  Serious: Yes (Hospitalization, Other)
  Sender: FDA-Public Use
  Company Number: US-RB-030642-11

PATIENT
  Age: 19 Year
  Sex: Male

DRUGS (1)
  1. SUBOXONE [Suspect]
     Indication: PRODUCT USED FOR UNKNOWN INDICATION
     Dosage: DOSING INFORMATION UNKNOWN
     Route: 065

REACTIONS (7)
  - PARAESTHESIA [None]
  - DRUG WITHDRAWAL SYNDROME [None]
  - CONFUSIONAL STATE [None]
  - DRY MOUTH [None]
  - MENTAL IMPAIRMENT [None]
  - HEPATITIS E [None]
  - UNDERDOSE [None]
